FAERS Safety Report 7149657-5 (Version None)
Quarter: 2010Q4

REPORT INFORMATION
  Report Type: 
  Country: None (occurrence: None)
  Receive Date: 20101209
  Receipt Date: 20101201
  Transmission Date: 20110411
  Serious: Yes (Hospitalization)
  Sender: FDA-Public Use
  Company Number: RU-MERCK-1011USA01473

PATIENT
  Age: 34 Year
  Sex: Male

DRUGS (1)
  1. CANCIDAS [Suspect]
     Indication: FEBRILE NEUTROPENIA
     Route: 065
     Dates: start: 20100922, end: 20101012

REACTIONS (5)
  - CANDIDIASIS [None]
  - DRUG INEFFECTIVE [None]
  - HEPATIC INFECTION FUNGAL [None]
  - MYCOSIS FUNGOIDES [None]
  - PNEUMONIA FUNGAL [None]
